FAERS Safety Report 9580771 (Version 1)
Quarter: 2013Q4

REPORT INFORMATION
  Report Type: Spontaneous
  Country: US (occurrence: None)
  Receive Date: 20131001
  Receipt Date: 20131001
  Transmission Date: 20140711
  Serious: Yes (Disabling)
  Sender: FDA-Public Use
  Company Number: None

PATIENT
  Age: 20 Year
  Sex: Female
  Weight: 58.06 kg

DRUGS (1)
  1. LEVAQUIN [Suspect]
     Indication: PNEUMONIA
     Dosage: 1 PILL
     Route: 048
     Dates: start: 20130215, end: 20131020

REACTIONS (9)
  - Dizziness [None]
  - Palpitations [None]
  - Tachycardia [None]
  - Myalgia [None]
  - Neuropathy peripheral [None]
  - Feeling of body temperature change [None]
  - Fatigue [None]
  - Visual impairment [None]
  - Vitreous floaters [None]
